APPROVED DRUG PRODUCT: TERCONAZOLE
Active Ingredient: TERCONAZOLE
Strength: 0.8%
Dosage Form/Route: CREAM;VAGINAL
Application: N021735 | Product #001 | TE Code: BX
Applicant: FOUGERA PHARMACEUTICALS INC
Approved: Oct 1, 2004 | RLD: Yes | RS: Yes | Type: RX